FAERS Safety Report 10071751 (Version 2)
Quarter: 2014Q2

REPORT INFORMATION
  Report Type: Spontaneous
  Country: US (occurrence: US)
  Receive Date: 20140411
  Receipt Date: 20140428
  Transmission Date: 20141212
  Serious: Yes (Life-Threatening, Hospitalization, Disabling, Other)
  Sender: FDA-Public Use
  Company Number: US-JNJFOC-20140406417

PATIENT
  Sex: 0

DRUGS (2)
  1. XARELTO [Suspect]
     Indication: CEREBROVASCULAR ACCIDENT PROPHYLAXIS
     Route: 048
  2. XARELTO [Suspect]
     Indication: ATRIAL FIBRILLATION
     Route: 048

REACTIONS (8)
  - Fall [Unknown]
  - Rib fracture [Unknown]
  - Pneumothorax traumatic [Unknown]
  - Pulmonary haemorrhage [Unknown]
  - Syncope [Unknown]
  - Swelling [Unknown]
  - Asthenia [Unknown]
  - Dizziness [Unknown]
